FAERS Safety Report 17896394 (Version 1)
Quarter: 2020Q2

REPORT INFORMATION
  Report Type: Spontaneous
  Country: US (occurrence: US)
  Receive Date: 20200615
  Receipt Date: 20200615
  Transmission Date: 20200714
  Serious: Yes (Hospitalization, Disabling, Other)
  Sender: FDA-Public Use
  Company Number: US-PURDUE PHARMA-USA-2020-0152457

PATIENT
  Sex: Male

DRUGS (4)
  1. OXYCONTIN [Suspect]
     Active Substance: OXYCODONE HYDROCHLORIDE
     Indication: PAIN
     Dosage: 20-60MG
     Route: 048
  2. PERCOCET [Suspect]
     Active Substance: ACETAMINOPHEN\OXYCODONE HYDROCHLORIDE
     Indication: PAIN
     Dosage: 10/325 MG, 3 TO 5 TIMES A DAY
     Route: 048
     Dates: start: 2002
  3. VICODIN [Suspect]
     Active Substance: ACETAMINOPHEN\HYDROCODONE BITARTRATE
     Indication: PAIN
     Dosage: UNK
     Route: 048
     Dates: start: 2002
  4. VICODIN [Suspect]
     Active Substance: ACETAMINOPHEN\HYDROCODONE BITARTRATE
     Dosage: 7.5 MG, UNK
     Route: 065
     Dates: start: 2002

REACTIONS (11)
  - Gait disturbance [Unknown]
  - Catheterisation cardiac [Unknown]
  - Disability [Unknown]
  - Eye disorder [Not Recovered/Not Resolved]
  - Cardiac pacemaker insertion [Unknown]
  - Hyperhidrosis [Unknown]
  - Drug dependence [Unknown]
  - Asthenia [Not Recovered/Not Resolved]
  - Arrhythmia [Unknown]
  - Drug ineffective [Not Recovered/Not Resolved]
  - Chest pain [Unknown]

NARRATIVE: CASE EVENT DATE: 2017
